FAERS Safety Report 6487681-6 (Version None)
Quarter: 2009Q4

REPORT INFORMATION
  Report Type: 
  Country: None (occurrence: None)
  Receive Date: 20091210
  Receipt Date: 20091207
  Transmission Date: 20100525
  Serious: No
  Sender: FDA-Public Use
  Company Number: US-JNJFOC-20091103476

PATIENT
  Age: 63 Year
  Sex: Female
  Weight: 58.97 kg

DRUGS (4)
  1. SIMPONI [Suspect]
     Indication: RHEUMATOID ARTHRITIS
     Route: 058
  2. THERM ART (MENOPAUSE) [Concomitant]
     Indication: MENOPAUSE
  3. AMBIEN [Concomitant]
     Indication: SLEEP DISORDER THERAPY
  4. VITAMIN D [Concomitant]

REACTIONS (4)
  - ALOPECIA [None]
  - BLOOD CREATINE PHOSPHOKINASE INCREASED [None]
  - HAIR DISORDER [None]
  - SINUSITIS [None]
